FAERS Safety Report 8208400 (Version 2)
Quarter: 2012Q4

REPORT INFORMATION
  Report Type: 
  Country: US (occurrence: US)
  Receive Date: 20111028
  Receipt Date: 20120917
  Transmission Date: 20130627
  Serious: Yes (Hospitalization, Other)
  Sender: FDA-Public Use
  Company Number: US-US-EMD SERONO, INC.-7091055

PATIENT
  Age: 50 Year
  Sex: Male
  Weight: 47 kg

DRUGS (1)
  1. REBIF [Suspect]
     Indication: PRODUCT USED FOR UNKNOWN INDICATION
     Route: 058
     Dates: start: 20080922, end: 201109

REACTIONS (2)
  - Suicide attempt [Recovering/Resolving]
  - Depression [Not Recovered/Not Resolved]
